FAERS Safety Report 14576914 (Version 1)
Quarter: 2018Q1

REPORT INFORMATION
  Report Type: Report from Study
  Country: AU (occurrence: AU)
  Receive Date: 20180227
  Receipt Date: 20180227
  Transmission Date: 20180509
  Serious: Yes (Death)
  Sender: FDA-Public Use
  Company Number: PHHY2018AU032263

PATIENT
  Weight: 69.6 kg

DRUGS (1)
  1. PKC412 [Suspect]
     Active Substance: MIDOSTAURIN
     Indication: ACUTE MYELOID LEUKAEMIA
     Dosage: 50 MG, BID
     Route: 048
     Dates: start: 20171117, end: 20171130

REACTIONS (3)
  - Acute myeloid leukaemia [Fatal]
  - Therapeutic response decreased [Unknown]
  - Disease complication [Fatal]
